FAERS Safety Report 9147951 (Version 2)
Quarter: 2013Q2

REPORT INFORMATION
  Report Type: Spontaneous
  Country: US (occurrence: US)
  Receive Date: 20130228
  Receipt Date: 20130426
  Transmission Date: 20140414
  Serious: Yes (Hospitalization)
  Sender: FDA-Public Use
  Company Number: US-RB-050389-13

PATIENT
  Age: 54 Year
  Sex: Male

DRUGS (1)
  1. SUBOXONE FILM [Suspect]
     Indication: DRUG DEPENDENCE
     Dosage: SUBOXONE FILM
     Route: 060
     Dates: start: 20120228

REACTIONS (2)
  - Fall [Recovered/Resolved]
  - Paraplegia [Not Recovered/Not Resolved]
